FAERS Safety Report 24198520 (Version 1)
Quarter: 2024Q3

REPORT INFORMATION
  Report Type: Spontaneous
  Country: US (occurrence: US)
  Receive Date: 20240812
  Receipt Date: 20240812
  Transmission Date: 20241016
  Serious: No
  Sender: TARO
  Company Number: US-TARO PHARMACEUTICALS USA INC.-2024TAR00552

PATIENT

DRUGS (4)
  1. WARFARIN [Suspect]
     Active Substance: WARFARIN
     Indication: Product used for unknown indication
     Dosage: 5 MG 4 DAYS A WEEK
     Route: 048
  2. WARFARIN [Suspect]
     Active Substance: WARFARIN
     Dosage: 5 MG 5 DAYS A WEEK
     Route: 048
     Dates: start: 2010
  3. WARFARIN [Suspect]
     Active Substance: WARFARIN
     Indication: Product used for unknown indication
     Dosage: 2.5 MG 3 DAYS A WEEK
     Route: 048
     Dates: start: 2010
  4. WARFARIN [Suspect]
     Active Substance: WARFARIN
     Dosage: 2.5MG 2 DAYS A WEEK
     Route: 048

REACTIONS (2)
  - Skin disorder [Not Recovered/Not Resolved]
  - International normalised ratio abnormal [Not Recovered/Not Resolved]
